FAERS Safety Report 7106193-X (Version None)
Quarter: 2010Q4

REPORT INFORMATION
  Report Type: 
  Country: None (occurrence: None)
  Receive Date: 20101116
  Receipt Date: 20101102
  Transmission Date: 20110411
  Serious: Yes (Other)
  Sender: FDA-Public Use
  Company Number: PHHY2009JP44779

PATIENT
  Sex: Male
  Weight: 58 kg

DRUGS (15)
  1. EXJADE [Suspect]
     Indication: IRON OVERLOAD
     Dosage: 500 MG DAILY
     Route: 048
     Dates: start: 20090930, end: 20091027
  2. EXJADE [Suspect]
     Dosage: 250 MG DAILY
     Route: 048
     Dates: start: 20091028, end: 20091123
  3. EXJADE [Suspect]
     Dosage: 375 MG DAILY
     Route: 048
     Dates: start: 20091124, end: 20091221
  4. EXJADE [Suspect]
     Dosage: 500 MG DAILY
     Route: 048
     Dates: start: 20091222, end: 20100209
  5. EXJADE [Suspect]
     Dosage: 625 MG DAILY
     Route: 048
     Dates: start: 20100210, end: 20100223
  6. EXJADE [Suspect]
     Dosage: 500 MG DAILY
     Route: 048
     Dates: start: 20100224, end: 20100228
  7. NEORAL [Suspect]
     Indication: APLASIA PURE RED CELL
     Dosage: 150 MG DAILY
     Dates: start: 20090930
  8. ACECOL [Concomitant]
     Indication: HYPERTENSION
     Dosage: UNK
     Route: 048
     Dates: start: 20090930
  9. DIOVAN [Concomitant]
     Indication: HYPERTENSION
     Dosage: 160 MG
     Route: 048
     Dates: start: 20090930
  10. NORVASC [Concomitant]
     Indication: HYPERTENSION
     Dosage: 5 MG
     Route: 048
     Dates: start: 20090930, end: 20100228
  11. PREDNISOLONE [Concomitant]
     Indication: APLASIA PURE RED CELL
     Dosage: 7.5 MG
     Route: 048
     Dates: start: 20090930
  12. ZANTAC [Concomitant]
     Dosage: 150 MG
     Route: 048
     Dates: start: 20090930, end: 20091027
  13. ROCALTROL [Concomitant]
     Dosage: 0.25 MG
     Route: 048
     Dates: start: 20090930
  14. TAKEPRON [Concomitant]
     Dosage: 15 MG
     Route: 048
     Dates: start: 20091028
  15. RED BLOOD CELLS, LEUCOCYTE DEPLETED [Concomitant]
     Dosage: 2 UNITS EVERY 2 WEEKS
     Dates: start: 20090902, end: 20100224

REACTIONS (3)
  - DISEASE PROGRESSION [None]
  - ERYTHEMA MULTIFORME [None]
  - RENAL DISORDER [None]
